FAERS Safety Report 22178585 (Version 2)
Quarter: 2023Q2

REPORT INFORMATION
  Report Type: Spontaneous
  Country: IT (occurrence: IT)
  Receive Date: 20230405
  Receipt Date: 20230420
  Transmission Date: 20230722
  Serious: Yes (Hospitalization, Other)
  Sender: FDA-Public Use
  Company Number: IT-BAXTER-2023BAX016339

PATIENT
  Age: 75 Year
  Sex: Female

DRUGS (5)
  1. PEMBROLIZUMAB [Suspect]
     Active Substance: PEMBROLIZUMAB
     Indication: Product used for unknown indication
     Dosage: 200 MG, Q3W,  AS PART OF EC REGIMEN WITH PEMBROLIZUMAB, NEOADJUVANT CHEMOTHERAPY
     Route: 042
     Dates: start: 20221005
  2. EPIRUBICIN [Suspect]
     Active Substance: EPIRUBICIN
     Indication: Product used for unknown indication
     Dosage: 110 MG, Q3W,  AS PART OF EC REGIMEN WITH PEMBROLIZUMAB, NEOADJUVANT CHEMOTHERAPY
     Route: 042
     Dates: start: 20230105, end: 20230126
  3. EPIRUBICIN [Suspect]
     Active Substance: EPIRUBICIN
     Dosage: 110 MG, Q3W,  AS PART OF EC REGIMEN WITH PEMBROLIZUMAB
     Route: 042
     Dates: start: 20230126, end: 20230215
  4. CYCLOPHOSPHAMIDE [Suspect]
     Active Substance: CYCLOPHOSPHAMIDE
     Indication: Product used for unknown indication
     Dosage: 740 MG Q3W, AS PART OF EC REGIMEN WITH PEMBROLIZUMAB, NEOADJUVANT CHEMOTHERAPY
     Route: 042
     Dates: start: 20230105, end: 20230126
  5. CYCLOPHOSPHAMIDE [Suspect]
     Active Substance: CYCLOPHOSPHAMIDE
     Dosage: 740 MG Q3W,  AS PART OF EC REGIMEN WITH PEMBROLIZUMAB
     Route: 042
     Dates: start: 20230126, end: 20230215

REACTIONS (3)
  - Febrile neutropenia [Recovered/Resolved]
  - Neutropenia [Recovered/Resolved]
  - Drug tolerance decreased [Unknown]

NARRATIVE: CASE EVENT DATE: 20230116
